FAERS Safety Report 8911797 (Version 4)
Quarter: 2013Q1

REPORT INFORMATION
  Report Type: Spontaneous
  Country: US (occurrence: US)
  Receive Date: 20121116
  Receipt Date: 20130109
  Transmission Date: 20140127
  Serious: Yes (Other)
  Sender: FDA-Public Use
  Company Number: US-PFIZER INC-2012285622

PATIENT
  Age: 52 Year
  Sex: Female
  Weight: 78 kg

DRUGS (10)
  1. COLESTID [Suspect]
     Indication: GASTRIC DISORDER
     Dosage: 2 G, 2X/DAY
     Route: 048
     Dates: start: 20121106, end: 20121109
  2. COLESTID [Suspect]
     Indication: GASTROINTESTINAL DISORDER
     Dosage: UNK, AS NEEDED
     Route: 048
  3. COLESTID [Suspect]
     Indication: DIARRHOEA
  4. LEVOTHYROXINE [Concomitant]
     Indication: THYROID DISORDER
     Dosage: 50 MG, DAILY
  5. LOVASTATIN [Concomitant]
     Indication: BLOOD CHOLESTEROL INCREASED
     Dosage: 20 MG, 1X/DAY
  6. ESTRADIOL [Concomitant]
     Indication: HYSTERECTOMY
     Dosage: 2 MG, DAILY
  7. NEXIUM [Concomitant]
     Indication: GASTRIC DISORDER
     Dosage: 40 MG, DAILY
  8. VITAMIN B12 [Concomitant]
     Indication: BONE DISORDER
     Dosage: 1000 UG, DAILY
  9. FISH OIL [Concomitant]
     Dosage: 1000 MG, 2X/DAY
  10. CENTRUM SILVER [Concomitant]
     Indication: GASTROOESOPHAGEAL REFLUX DISEASE
     Dosage: UNK, DAILY

REACTIONS (5)
  - Wrong drug administered [Unknown]
  - Product quality issue [Unknown]
  - Choking [Unknown]
  - Abdominal discomfort [Recovered/Resolved]
  - Off label use [Unknown]
